FAERS Safety Report 14322681 (Version 1)
Quarter: 2017Q4

REPORT INFORMATION
  Report Type: Spontaneous
  Country: US (occurrence: US)
  Receive Date: 20171225
  Receipt Date: 20171225
  Transmission Date: 20180321
  Serious: No
  Sender: FDA-Public Use
  Company Number: US-SUNSHINE LAKE PHARMA CO, LTD.-2037701

PATIENT
  Age: 43 Year
  Sex: Female

DRUGS (3)
  1. CLARITHROMYCIN. [Suspect]
     Active Substance: CLARITHROMYCIN
     Indication: GASTRIC INFECTION
     Route: 048
     Dates: start: 20170824
  2. CLARITHROMYCIN. [Suspect]
     Active Substance: CLARITHROMYCIN
     Indication: BACTERIAL INFECTION
     Route: 048
     Dates: start: 20170824
  3. AMOXICILLIN. [Concomitant]
     Active Substance: AMOXICILLIN

REACTIONS (3)
  - Tooth discolouration [Not Recovered/Not Resolved]
  - Dysgeusia [Recovered/Resolved]
  - Initial insomnia [Recovered/Resolved]
